FAERS Safety Report 8898478 (Version 1)
Quarter: 2012Q4

REPORT INFORMATION
  Report Type: 
  Country: US (occurrence: US)
  Receive Date: 20121109
  Receipt Date: 20121109
  Transmission Date: 20130627
  Serious: No
  Sender: FDA-Public Use
  Company Number: US-009507513-1211USA001326

PATIENT
  Age: 86 Year
  Sex: Male

DRUGS (2)
  1. JANUVIA [Suspect]
     Dosage: UNK
     Dates: start: 2012, end: 2012
  2. ONGLYZA [Concomitant]
     Dosage: UNK

REACTIONS (1)
  - Fatigue [Unknown]
